FAERS Safety Report 10635002 (Version 6)
Quarter: 2016Q3

REPORT INFORMATION
  Report Type: Spontaneous
  Country: CZ (occurrence: CZ)
  Receive Date: 20141205
  Receipt Date: 20160812
  Transmission Date: 20161109
  Serious: Yes (Hospitalization)
  Sender: FDA-Public Use
  Company Number: CZ-SA-2014SA113201

PATIENT
  Age: 30 Year
  Sex: Male

DRUGS (16)
  1. ITOPRIDE [Concomitant]
     Active Substance: ITOPRIDE
     Route: 048
     Dates: start: 2014
  2. DIAZEPAM. [Concomitant]
     Active Substance: DIAZEPAM
     Route: 048
     Dates: start: 2014
  3. NADROPARIN [Concomitant]
     Active Substance: NADROPARIN
     Route: 058
     Dates: start: 2014
  4. METHYLPREDNISOLONE. [Suspect]
     Active Substance: METHYLPREDNISOLONE
     Route: 048
  5. PARACETAMOL [Concomitant]
     Active Substance: ACETAMINOPHEN
     Route: 042
     Dates: start: 2014
  6. ACIDUM FOLICUM [Concomitant]
     Active Substance: FOLIC ACID
     Route: 048
     Dates: start: 2014
  7. LEMTRADA [Suspect]
     Active Substance: ALEMTUZUMAB
     Indication: MULTIPLE SCLEROSIS
     Route: 065
     Dates: start: 201508, end: 201508
  8. NEODOLPASSE [Concomitant]
     Route: 042
     Dates: start: 2014
  9. AKTIFERRIN [Concomitant]
     Active Substance: FERROUS SULFATE\SERINE
     Dates: start: 2014
  10. LEMTRADA [Suspect]
     Active Substance: ALEMTUZUMAB
     Indication: MULTIPLE SCLEROSIS
     Route: 065
     Dates: start: 20140811, end: 20140815
  11. NOVALGIN [Concomitant]
     Active Substance: METAMIZOLE SODIUM
     Route: 042
     Dates: start: 2014
  12. PHYTOMENADIONE [Concomitant]
     Active Substance: PHYTONADIONE
     Dosage: VIGANTOL GTT
     Route: 048
     Dates: start: 2014
  13. DEGAN [Concomitant]
     Active Substance: METOCLOPRAMIDE HYDROCHLORIDE
     Route: 042
     Dates: start: 2014
  14. KALNORMIN [Concomitant]
     Active Substance: POTASSIUM CHLORIDE
     Dates: start: 2014
  15. OMEPRAZOLE. [Concomitant]
     Active Substance: OMEPRAZOLE
     Route: 048
     Dates: start: 2014
  16. FLECTOR [Concomitant]
     Active Substance: DICLOFENAC EPOLAMINE
     Indication: PROPHYLAXIS
     Dosage: LOCAL THERAPY ON KNEES, ANKLES, SHOULDERS
     Dates: start: 2014

REACTIONS (13)
  - Fatigue [Unknown]
  - Listeria sepsis [Unknown]
  - Headache [Unknown]
  - Oral fungal infection [Unknown]
  - Oral candidiasis [Not Recovered/Not Resolved]
  - Chest pain [Unknown]
  - Dermatitis allergic [Unknown]
  - Dyspnoea [Unknown]
  - CSF cell count increased [Recovered/Resolved]
  - Pneumonia [Unknown]
  - Pneumonia fungal [Unknown]
  - Pyrexia [Unknown]
  - Meningitis [Unknown]

NARRATIVE: CASE EVENT DATE: 20140817
